FAERS Safety Report 7687295-6 (Version None)
Quarter: 2011Q3

REPORT INFORMATION
  Report Type: 
  Country: None (occurrence: None)
  Receive Date: 20110816
  Receipt Date: 20110803
  Transmission Date: 20111222
  Serious: Yes (Hospitalization)
  Sender: FDA-Public Use
  Company Number: JP-MYLANLABS-2011S1016154

PATIENT
  Age: 45 Year
  Sex: Male

DRUGS (3)
  1. CEFTRIAXONE [Suspect]
     Route: 065
  2. DICLOFENAC SODIUM [Suspect]
     Route: 065
  3. LOXOPROFEN [Suspect]
     Route: 065

REACTIONS (3)
  - ACQUIRED HAEMOPHILIA [None]
  - BLOOD ALKALINE PHOSPHATASE INCREASED [None]
  - RASH PRURITIC [None]
